FAERS Safety Report 9142130 (Version 1)
Quarter: 2013Q1

REPORT INFORMATION
  Report Type: Spontaneous
  Country: US (occurrence: US)
  Receive Date: 20130305
  Receipt Date: 20130305
  Transmission Date: 20140127
  Serious: No
  Sender: FDA-Public Use
  Company Number: US-AMGEN-USASP2013011935

PATIENT
  Age: 49 Year
  Sex: Female
  Weight: 78.01 kg

DRUGS (3)
  1. ENBREL [Suspect]
     Indication: RHEUMATOID ARTHRITIS
     Dosage: 50 MG, QWK
     Route: 058
     Dates: start: 20130206
  2. PREDNISONE [Concomitant]
     Dosage: UNK UNK, QD
     Route: 048
  3. LEFLUNOMIDE [Concomitant]
     Dosage: UNK UNK, QD
     Route: 048

REACTIONS (2)
  - Bone pain [Not Recovered/Not Resolved]
  - Injection site pain [Not Recovered/Not Resolved]
